FAERS Safety Report 8123397-8 (Version None)
Quarter: 2012Q1

REPORT INFORMATION
  Report Type: 
  Country: None (occurrence: None)
  Receive Date: 20120208
  Receipt Date: 20120125
  Transmission Date: 20120608
  Serious: Yes (Death, Hospitalization)
  Sender: FDA-Public Use
  Company Number: US-MUTUAL PHARMACEUTICAL COMPANY, INC.-CLHC20120013

PATIENT
  Age: 71 Year
  Sex: Male

DRUGS (1)
  1. COLCHICINE [Suspect]
     Indication: PRODUCT USED FOR UNKNOWN INDICATION
     Route: 048
     Dates: end: 20100101

REACTIONS (13)
  - WHITE BLOOD CELL DISORDER [None]
  - COMPLETED SUICIDE [None]
  - DISCOMFORT [None]
  - NAUSEA [None]
  - MULTI-ORGAN FAILURE [None]
  - HAEMOGLOBIN INCREASED [None]
  - PCO2 DECREASED [None]
  - BLOOD BICARBONATE DECREASED [None]
  - VOMITING [None]
  - INTERNATIONAL NORMALISED RATIO INCREASED [None]
  - ACTIVATED PARTIAL THROMBOPLASTIN TIME PROLONGED [None]
  - INTENTIONAL OVERDOSE [None]
  - BLOOD PH DECREASED [None]
